FAERS Safety Report 10445744 (Version 2)
Quarter: 2014Q4

REPORT INFORMATION
  Report Type: Other
  Country: DK (occurrence: US)
  Receive Date: 20140910
  Receipt Date: 20141031
  Transmission Date: 20150528
  Serious: Yes (Death)
  Sender: FDA-Public Use
  Company Number: US-FRI-1000070432

PATIENT
  Age: 35 Year
  Sex: Female
  Weight: 82.5 kg

DRUGS (1)
  1. CITALOPRAM [Suspect]
     Active Substance: CITALOPRAM HYDROBROMIDE

REACTIONS (6)
  - Cardiac arrest [Fatal]
  - Serotonin syndrome [Fatal]
  - Electrocardiogram QT prolonged [Fatal]
  - Torsade de pointes [Fatal]
  - Seizure [Fatal]
  - Intentional overdose [Fatal]
